FAERS Safety Report 6239567-X (Version None)
Quarter: 2009Q2

REPORT INFORMATION
  Report Type: 
  Country: None (occurrence: None)
  Receive Date: 20090619
  Receipt Date: 20090611
  Transmission Date: 20091009
  Serious: Yes (Other)
  Sender: FDA-Public Use
  Company Number: ADR3832009

PATIENT
  Age: 44 Year
  Sex: Female

DRUGS (3)
  1. CIPROFLOXACIN [Suspect]
     Indication: URINARY TRACT INFECTION
     Dosage: 500 MG, ORAL
     Route: 048
     Dates: start: 20090514, end: 20090520
  2. DICLOFENAC [Concomitant]
  3. NOVOMIX [Concomitant]

REACTIONS (4)
  - FACIAL PAIN [None]
  - IMPAIRED WORK ABILITY [None]
  - NEUROLOGICAL SYMPTOM [None]
  - PARAESTHESIA [None]
